FAERS Safety Report 8758665 (Version 2)
Quarter: 2013Q1

REPORT INFORMATION
  Report Type: Spontaneous
  Country: US (occurrence: US)
  Receive Date: 20120829
  Receipt Date: 20130307
  Transmission Date: 20140127
  Serious: No
  Sender: FDA-Public Use
  Company Number: US-JNJFOC-20120804055

PATIENT
  Age: 22 Year
  Sex: Female

DRUGS (1)
  1. INVEGA SUSTENNA [Suspect]
     Indication: PRODUCT USED FOR UNKNOWN INDICATION
     Dosage: DISCONTINUED 3 WEEKS PRIOR TO THIS REPORT
     Route: 030

REACTIONS (2)
  - Drug effect decreased [Unknown]
  - Exposure during pregnancy [Unknown]
